FAERS Safety Report 6983372-3 (Version None)
Quarter: 2010Q3

REPORT INFORMATION
  Report Type: 
  Country: None (occurrence: None)
  Receive Date: 20100914
  Receipt Date: 20100909
  Transmission Date: 20110219
  Serious: Yes (Death)
  Sender: FDA-Public Use
  Company Number: PHHY2010US59578

PATIENT
  Sex: Female

DRUGS (3)
  1. FANAPT [Suspect]
     Dosage: UNK
     Route: 048
  2. FANAPT [Suspect]
     Dosage: 8 MG, UNK
     Route: 048
     Dates: start: 20100902
  3. REMERON [Concomitant]

REACTIONS (1)
  - DEATH [None]
